FAERS Safety Report 5580288-4 (Version None)
Quarter: 2008Q1

REPORT INFORMATION
  Report Type: 
  Country: None (occurrence: None)
  Receive Date: 20080103
  Receipt Date: 20071231
  Transmission Date: 20080703
  Serious: Yes (Other)
  Sender: FDA-Public Use
  Company Number: B0501395A

PATIENT
  Age: 37 Year
  Sex: Male

DRUGS (2)
  1. CLAMOXYL [Suspect]
     Dosage: 12G PER DAY
     Route: 048
     Dates: start: 20071123, end: 20071130
  2. KEPPRA [Concomitant]
     Indication: DRUG USE FOR UNKNOWN INDICATION
     Dosage: 500MG TWICE PER DAY
     Route: 048
     Dates: start: 20071019

REACTIONS (1)
  - NEUTROPENIA [None]
